FAERS Safety Report 7478842-8 (Version None)
Quarter: 2011Q2

REPORT INFORMATION
  Report Type: 
  Country: None (occurrence: None)
  Receive Date: 20110513
  Receipt Date: 20110420
  Transmission Date: 20111010
  Serious: Yes (Hospitalization)
  Sender: FDA-Public Use
  Company Number: US-BAYER-201041564NA

PATIENT
  Age: 46 Year
  Sex: Female
  Weight: 73 kg

DRUGS (4)
  1. FOLIC ACID [Concomitant]
     Dosage: UNK
     Dates: start: 20071101
  2. YASMIN [Suspect]
     Indication: ACNE
  3. LIPITOR [Concomitant]
     Dosage: UNK
     Dates: start: 20071101
  4. YAZ [Suspect]
     Indication: ACNE

REACTIONS (2)
  - PAIN [None]
  - CEREBROVASCULAR ACCIDENT [None]
